FAERS Safety Report 4468043-X (Version None)
Quarter: 2004Q4

REPORT INFORMATION
  Report Type: 
  Country: None (occurrence: None)
  Receive Date: 20041004
  Receipt Date: 20040924
  Transmission Date: 20050328
  Serious: Yes (Hospitalization)
  Sender: FDA-Public Use
  Company Number: TCI2004A03291

PATIENT
  Age: 64 Year
  Sex: Male

DRUGS (10)
  1. PIOGLITAZONE HCL [Suspect]
     Indication: DIABETES MELLITUS NON-INSULIN-DEPENDENT
     Dosage: 15 MG (15 MG, 1 IN 1 D); 30 MG (30 MG,1 IN 1 D); PER ORAL
     Route: 048
     Dates: start: 20040325, end: 20040518
  2. PIOGLITAZONE HCL [Suspect]
     Indication: DIABETES MELLITUS NON-INSULIN-DEPENDENT
     Dosage: 15 MG (15 MG, 1 IN 1 D); 30 MG (30 MG,1 IN 1 D); PER ORAL
     Route: 048
     Dates: start: 20040519, end: 20040908
  3. VOGLIBOSE (CODE NOT BROKEN) (VOGLIBOSE) [Suspect]
     Indication: DIABETES MELLITUS NON-INSULIN-DEPENDENT
     Dosage: 0.6 MG OR PLACEBO (3 IN 1 D) PER ORAL
     Route: 048
     Dates: start: 20040324, end: 20040908
  4. BASEN TABLETS 0.2(VOGLIBOSE) [Suspect]
     Indication: DIABETES MELLITUS NON-INSULIN-DEPENDENT
     Dosage: 0.6 MG (0.2 MG, 3 IN 1 D); 0.6 MG (0.6 MG, 1 D) PER ORAL
     Route: 048
     Dates: start: 20020309, end: 20040324
  5. BASEN TABLETS 0.2(VOGLIBOSE) [Suspect]
     Indication: DIABETES MELLITUS NON-INSULIN-DEPENDENT
     Dosage: 0.6 MG (0.2 MG, 3 IN 1 D); 0.6 MG (0.6 MG, 1 D) PER ORAL
     Route: 048
     Dates: start: 20040909
  6. ALLOPURINOL [Concomitant]
  7. SILDENAFIL CITRATE [Concomitant]
  8. GLIBENCLAMIDE [Concomitant]
  9. GLIMEPIRIDE [Concomitant]
  10. BENZBROMARONE [Concomitant]

REACTIONS (7)
  - ALANINE AMINOTRANSFERASE INCREASED [None]
  - ASPARTATE AMINOTRANSFERASE INCREASED [None]
  - BILE DUCT OBSTRUCTION [None]
  - BLOOD LACTATE DEHYDROGENASE INCREASED [None]
  - GAMMA-GLUTAMYLTRANSFERASE INCREASED [None]
  - MALAISE [None]
  - PYREXIA [None]
